FAERS Safety Report 9949570 (Version 1)
Quarter: 2014Q1

REPORT INFORMATION
  Report Type: Report from Study
  Country: US (occurrence: US)
  Receive Date: 20140304
  Receipt Date: 20140304
  Transmission Date: 20141002
  Serious: No
  Sender: FDA-Public Use
  Company Number: US-ABBVIE-13P-163-1067084-00

PATIENT
  Sex: Male

DRUGS (3)
  1. HUMIRA [Suspect]
     Indication: PSORIATIC ARTHROPATHY
     Route: 058
     Dates: start: 20121114
  2. METHOTREXATE [Suspect]
     Dosage: 6 TABLETS WEEKLY
  3. METHOTREXATE [Suspect]
     Dosage: 2 TABLETS A WEEK FOR THE NEXT 3 WEEKS

REACTIONS (8)
  - Fatigue [Unknown]
  - Somnolence [Unknown]
  - Palpitations [Unknown]
  - Nausea [Unknown]
  - Abdominal pain [Unknown]
  - Sinusitis [Unknown]
  - Mastitis [Unknown]
  - Bronchitis [Unknown]
